FAERS Safety Report 9462030 (Version 1)
Quarter: 2013Q3

REPORT INFORMATION
  Report Type: Spontaneous
  Country: FR (occurrence: FR)
  Receive Date: 20130816
  Receipt Date: 20130816
  Transmission Date: 20140515
  Serious: Yes (Hospitalization)
  Sender: FDA-Public Use
  Company Number: FR-JNJFOC-20130703512

PATIENT
  Age: 34 Year
  Sex: Male
  Weight: 80 kg

DRUGS (9)
  1. XEPLION [Suspect]
     Indication: SCHIZOPHRENIA
     Route: 030
     Dates: start: 20130618, end: 20130618
  2. XEPLION [Suspect]
     Indication: SCHIZOPHRENIA
     Route: 030
     Dates: start: 20130521, end: 20130521
  3. XEPLION [Suspect]
     Indication: SCHIZOPHRENIA
     Route: 030
     Dates: start: 20130417, end: 20130417
  4. XEPLION [Suspect]
     Indication: SCHIZOPHRENIA
     Route: 030
     Dates: start: 20130326, end: 20130326
  5. LOXAPAC [Concomitant]
     Indication: PSYCHOTIC DISORDER
     Dosage: 50 DROPS PER 24 HOUR.
     Route: 048
  6. ALPRAZOLAM [Concomitant]
     Indication: PSYCHOTIC DISORDER
     Route: 048
  7. ZOLPIDEM [Concomitant]
     Indication: SLEEP DISORDER
     Route: 048
  8. SEROPLEX [Concomitant]
     Indication: DEPRESSION
     Route: 048
  9. HAVLANE [Concomitant]
     Indication: SLEEP DISORDER
     Route: 048

REACTIONS (3)
  - Delirium [Unknown]
  - Drug effect decreased [Unknown]
  - Inappropriate schedule of drug administration [Unknown]
